FAERS Safety Report 5409845-2 (Version None)
Quarter: 2007Q3

REPORT INFORMATION
  Report Type: 
  Country: None (occurrence: None)
  Receive Date: 20070807
  Receipt Date: 20070802
  Transmission Date: 20080115
  Serious: Yes (Death)
  Sender: FDA-Public Use
  Company Number: 056-C5013-07080150

PATIENT
  Age: 72 Year
  Sex: Male

DRUGS (1)
  1. CC-5013 (LENALIDOMIDE) [Suspect]
     Indication: MULTIPLE MYELOMA
     Dosage: 25-10MG, DAILY, ORAL; 10 MG, ORAL
     Route: 048

REACTIONS (1)
  - CHRONIC RESPIRATORY FAILURE [None]
